FAERS Safety Report 5937051-1 (Version None)
Quarter: 2008Q4

REPORT INFORMATION
  Report Type: 
  Country: None (occurrence: None)
  Receive Date: 20081031
  Receipt Date: 20081027
  Transmission Date: 20090506
  Serious: Yes (Death)
  Sender: FDA-Public Use
  Company Number: US-BAYER-200826080NA

PATIENT
  Age: 54 Year
  Sex: Male

DRUGS (1)
  1. MYCELEX [Suspect]
     Indication: DRUG USE FOR UNKNOWN INDICATION
     Route: 002
     Dates: start: 20080101, end: 20080601

REACTIONS (1)
  - DEATH [None]
